FAERS Safety Report 8044623-X (Version None)
Quarter: 2012Q1

REPORT INFORMATION
  Report Type: 
  Country: None (occurrence: None)
  Receive Date: 20120113
  Receipt Date: 20120111
  Transmission Date: 20120608
  Serious: Yes (Other)
  Sender: FDA-Public Use
  Company Number: US-PFIZER INC-2012009523

PATIENT
  Sex: Male
  Weight: 81.633 kg

DRUGS (6)
  1. ETODOLAC [Concomitant]
     Indication: SWELLING
     Dosage: 400 MG, UNK
  2. PREDNISONE [Concomitant]
     Indication: SWELLING
     Dosage: UNK
  3. BENZATHINE CLOXACILLIN [Suspect]
     Dosage: UNK
  4. CHANTIX [Suspect]
     Dosage: UNK
  5. CHANTIX [Suspect]
     Indication: SMOKING CESSATION THERAPY
     Dosage: 0.5 MG, DAILY
     Dates: start: 20111201
  6. CLINDAMYCIN [Concomitant]
     Indication: FUNGAL INFECTION
     Dosage: 300 MG, DAILY

REACTIONS (4)
  - OEDEMA PERIPHERAL [None]
  - DRUG HYPERSENSITIVITY [None]
  - PRURITUS [None]
  - GRIP STRENGTH DECREASED [None]
